FAERS Safety Report 10201938 (Version 1)
Quarter: 2014Q2

REPORT INFORMATION
  Report Type: Report from Study
  Country: FR (occurrence: FR)
  Receive Date: 20140528
  Receipt Date: 20140528
  Transmission Date: 20141212
  Serious: Yes (Hospitalization, Other)
  Sender: FDA-Public Use
  Company Number: FR-ACTELION-A-CH2014-99282

PATIENT
  Age: 65 Year
  Sex: Female

DRUGS (9)
  1. MACITENTAN [Suspect]
     Indication: PULMONARY ARTERIAL HYPERTENSION
     Dosage: 10 MG, OD
     Route: 048
     Dates: start: 20140510
  2. BISOPROLOL [Concomitant]
     Dosage: UNK
     Dates: start: 1982
  3. ATORVASTATINE [Concomitant]
     Dosage: UNK
     Dates: start: 2004
  4. LERCANIDIPINE [Concomitant]
     Dosage: UNK
     Dates: start: 2010
  5. IRON [Concomitant]
     Dosage: UNK
     Dates: start: 201312
  6. ALLOPURINOL [Concomitant]
     Dosage: UNK
     Dates: start: 1994
  7. OXYBUTYNIN [Concomitant]
     Dosage: UNK
     Dates: start: 2008
  8. COLECALCIFEROL [Concomitant]
     Dosage: UNK
     Dates: start: 2011
  9. INSULIN [Concomitant]
     Dosage: UNK
     Dates: start: 2004

REACTIONS (4)
  - Pulmonary oedema [Recovered/Resolved with Sequelae]
  - Dyspnoea [Recovered/Resolved with Sequelae]
  - Respiratory gas exchange disorder [Recovered/Resolved with Sequelae]
  - Oedema peripheral [Recovered/Resolved with Sequelae]
